FAERS Safety Report 10238362 (Version 1)
Quarter: 2014Q2

REPORT INFORMATION
  Report Type: Spontaneous
  Country: US (occurrence: US)
  Receive Date: 20140616
  Receipt Date: 20140616
  Transmission Date: 20141212
  Serious: Yes (Hospitalization)
  Sender: FDA-Public Use
  Company Number: US-BAYER-2014-087461

PATIENT
  Age: 37 Year
  Sex: Female
  Weight: 93.88 kg

DRUGS (15)
  1. YASMIN [Suspect]
  2. ANUCORT-HC [Concomitant]
     Indication: HAEMORRHOIDS
     Dosage: 25 MG, UNK
     Route: 054
  3. ASPIRIN [Concomitant]
     Dosage: 81 MG, UNK
     Route: 048
  4. INDERAL LA [Concomitant]
     Indication: MIGRAINE
     Dosage: 120 MG, UNK
     Route: 048
  5. MINOCYCLINE [Concomitant]
     Indication: ACNE
     Dosage: 100 MG, UNK
     Route: 048
  6. SERTRALINE [Concomitant]
     Indication: DEPRESSION
     Dosage: 100 MG, UNK
     Route: 048
  7. ZOLOFT [Concomitant]
     Indication: ANXIETY
     Dosage: 100 MG, UNK
     Route: 048
  8. TRAZODONE [Concomitant]
     Indication: INSOMNIA
     Dosage: 50 MG, UNK
     Route: 048
  9. TRIAMCINOLONE [Concomitant]
     Indication: RASH
     Dosage: 0.1 %, UNK
     Route: 061
  10. MULTIVITAMIN [Concomitant]
     Route: 048
  11. FOLIC ACID [Concomitant]
     Route: 048
  12. FISH OIL [Concomitant]
  13. IBUPROFEN [Concomitant]
     Indication: PAIN
     Dosage: 800 MG, UNK
     Route: 048
  14. DEXAMETHASONE [Concomitant]
     Dosage: 2 MG, UNK
     Route: 048
  15. BENZACLIN [Concomitant]

REACTIONS (1)
  - Deep vein thrombosis [Recovered/Resolved]
